FAERS Safety Report 13653543 (Version 1)
Quarter: 2017Q2

REPORT INFORMATION
  Report Type: Spontaneous
  Country: US (occurrence: US)
  Receive Date: 20170614
  Receipt Date: 20170614
  Transmission Date: 20170830
  Serious: No
  Sender: FDA-Public Use
  Company Number: US-ROCHE-1305214

PATIENT
  Sex: Female

DRUGS (13)
  1. XELODA [Suspect]
     Active Substance: CAPECITABINE
     Route: 048
     Dates: start: 20140113
  2. ASPIRIN. [Concomitant]
     Active Substance: ASPIRIN
  3. XELODA [Suspect]
     Active Substance: CAPECITABINE
     Route: 048
     Dates: start: 20140113
  4. VOLTAREN [Concomitant]
     Active Substance: DICLOFENAC SODIUM
  5. GARLIC. [Concomitant]
     Active Substance: GARLIC
  6. LOSARTAN. [Concomitant]
     Active Substance: LOSARTAN
  7. XELODA [Suspect]
     Active Substance: CAPECITABINE
     Indication: BREAST CANCER
     Dosage: TWO WEEKS ON ONE WEEK OFF
     Route: 048
     Dates: start: 20131008
  8. CINNAMON. [Concomitant]
     Active Substance: CINNAMON
  9. METFORMIN [Concomitant]
     Active Substance: METFORMIN HYDROCHLORIDE
  10. VITAMIN B12 [Concomitant]
     Active Substance: CYANOCOBALAMIN
  11. VITAMIN C [Concomitant]
     Active Substance: ASCORBIC ACID
  12. VICODIN [Concomitant]
     Active Substance: ACETAMINOPHEN\HYDROCODONE BITARTRATE
  13. FISH OIL [Concomitant]
     Active Substance: FISH OIL

REACTIONS (2)
  - Nausea [Unknown]
  - Diarrhoea [Unknown]
